FAERS Safety Report 11047205 (Version 1)
Quarter: 2015Q2

REPORT INFORMATION
  Report Type: Spontaneous
  Country: PT (occurrence: PT)
  Receive Date: 20150420
  Receipt Date: 20150420
  Transmission Date: 20150821
  Serious: Yes (Life-Threatening)
  Sender: FDA-Public Use
  Company Number: PT-ACTAVIS-2014-20060

PATIENT
  Age: 63 Year
  Sex: Female
  Weight: 80 kg

DRUGS (2)
  1. BUPRENORPHINA ACTAVIS [Suspect]
     Active Substance: BUPRENORPHINE
     Indication: PAIN
     Dosage: 2 DF, QID(80 MG EVERY 4 DAYS, 140?G/H,  TRANSDERMAL PATCH)
     Route: 062
     Dates: start: 20140528, end: 20140814
  2. BUPRENORPHINE [Concomitant]
     Active Substance: BUPRENORPHINE
     Indication: PAIN
     Dosage: 2 DF, QID( 80 MG EVERY 4 DAYS, 140?G/H)
     Route: 062
     Dates: end: 20140527

REACTIONS (3)
  - Product substitution issue [Unknown]
  - Product quality issue [None]
  - Drug ineffective [Recovered/Resolved]

NARRATIVE: CASE EVENT DATE: 20140528
